FAERS Safety Report 18474338 (Version 1)
Quarter: 2020Q4

REPORT INFORMATION
  Report Type: Spontaneous
  Country: GB (occurrence: GB)
  Receive Date: 20201106
  Receipt Date: 20201106
  Transmission Date: 20210114
  Serious: Yes (Other)
  Sender: FDA-Public Use
  Company Number: GB-TEVA-2020-GB-1844916

PATIENT
  Age: 94 Year
  Sex: Female
  Weight: 44 kg

DRUGS (14)
  1. PREGABALIN. [Concomitant]
     Active Substance: PREGABALIN
     Dosage: 2 DF
     Dates: start: 20201005
  2. GATALIN XL [Concomitant]
     Dosage: 1 DOSAGE FORMS DAILY;
     Dates: start: 20200917
  3. BISOPROLOL [Concomitant]
     Active Substance: BISOPROLOL
     Dosage: 1 DF
     Dates: start: 20200819
  4. GABAPENTIN. [Suspect]
     Active Substance: GABAPENTIN
     Dosage: TAKE ONE A DAY ON DAY 1, THEN INCREASE, 100 MG
     Dates: start: 20201001
  5. GALANTAMINE. [Concomitant]
     Active Substance: GALANTAMINE
     Dosage: 1 DOSAGE FORMS DAILY;
     Dates: start: 20200909
  6. SNO TEARS [Concomitant]
     Dosage: USE AS DIRECTED
     Dates: start: 20190715
  7. BUMETANIDE. [Concomitant]
     Active Substance: BUMETANIDE
     Dosage: TAKE TWO EACH MORNING AND ONE AT 12. 3 DF
     Dates: start: 20190715
  8. RAMIPRIL. [Concomitant]
     Active Substance: RAMIPRIL
     Dosage: 1 DF
     Dates: start: 20200716
  9. MORPHINE SULFATE. [Concomitant]
     Active Substance: MORPHINE SULFATE
     Dosage: 10 ML
     Dates: start: 20200923
  10. LACTULOSE. [Concomitant]
     Active Substance: LACTULOSE
     Dosage: 15 ML UP TO TWICE DAILY
     Dates: start: 20200715, end: 20200725
  11. NEFOPAM [Concomitant]
     Active Substance: NEFOPAM
     Dosage: TO BE TAKEN THREE TIMES DAILY.
     Dates: start: 20200923, end: 20201008
  12. BUTEC [Concomitant]
     Active Substance: BUPRENORPHINE
     Dosage: APPLY 1 DF
     Dates: start: 20200921
  13. FELODIPINE. [Concomitant]
     Active Substance: FELODIPINE
     Dosage: 1 DF
     Dates: start: 20190715
  14. TRIMETHOPRIM. [Concomitant]
     Active Substance: TRIMETHOPRIM
     Dosage: 2 DF
     Dates: start: 20201005, end: 20201008

REACTIONS (3)
  - Confusional state [Unknown]
  - Hallucination [Recovering/Resolving]
  - Agitation [Recovering/Resolving]

NARRATIVE: CASE EVENT DATE: 20201008
